FAERS Safety Report 11849545 (Version 3)
Quarter: 2016Q1

REPORT INFORMATION
  Report Type: Spontaneous
  Country: JP (occurrence: JP)
  Receive Date: 20151218
  Receipt Date: 20160205
  Transmission Date: 20160526
  Serious: Yes (Hospitalization)
  Sender: FDA-Public Use
  Company Number: JP-ASTRAZENECA-2015SF26754

PATIENT
  Sex: Female

DRUGS (3)
  1. BYDUREON [Suspect]
     Active Substance: EXENATIDE
     Indication: DIABETES MELLITUS
     Dosage: SINGLE DOSE TRAY, 2 MILLIGRAMS ONCE A WEEK
     Route: 058
     Dates: start: 20140515, end: 20151111
  2. BIGUANIDE, DERIVATES AND PREPARATIONS [Concomitant]
     Dosage: DOSE UNKNOWN
     Route: 065
  3. BYDUREON [Suspect]
     Active Substance: EXENATIDE
     Indication: DIABETES MELLITUS
     Dosage: DUAL CHAMBER PEN, 2 MILLIGRAMS ONCE A WEEK
     Route: 058
     Dates: start: 20151112, end: 20151210

REACTIONS (3)
  - Hyperglycaemia [Recovered/Resolved]
  - Needle issue [Unknown]
  - Drug dose omission [Unknown]

NARRATIVE: CASE EVENT DATE: 20151210
